FAERS Safety Report 21656089 (Version 1)
Quarter: 2022Q4

REPORT INFORMATION
  Report Type: Spontaneous
  Country: US (occurrence: None)
  Receive Date: 20221128
  Receipt Date: 20221128
  Transmission Date: 20230112
  Serious: No
  Sender: FDA-Public Use
  Company Number: None

PATIENT
  Sex: Female

DRUGS (1)
  1. STELARA [Suspect]
     Active Substance: USTEKINUMAB
     Indication: Psoriasis
     Dosage: 45 MG EVERY 12 WEEKS SUBCUTANEOUS?
     Route: 058
     Dates: start: 20221026

REACTIONS (4)
  - Drug ineffective [None]
  - Pruritus [None]
  - Arthralgia [None]
  - Arthralgia [None]
